FAERS Safety Report 9127151 (Version 1)
Quarter: 2013Q1

REPORT INFORMATION
  Report Type: Spontaneous
  Country: MX (occurrence: MX)
  Receive Date: 20130122
  Receipt Date: 20130122
  Transmission Date: 20140127
  Serious: Yes (Hospitalization, Other)
  Sender: FDA-Public Use
  Company Number: PHHY2013MX005085

PATIENT
  Age: 82 Year
  Sex: Male

DRUGS (4)
  1. EXELON PATCH [Suspect]
     Dosage: 3 PATCHES DAILY
     Route: 062
     Dates: start: 201211, end: 201211
  2. SIFROL [Concomitant]
     Dosage: 3 DF
     Dates: start: 201002
  3. LEVODOPA [Concomitant]
     Dosage: 3 DF,DAILY
     Dates: start: 201002
  4. BIPERIDENO [Concomitant]
     Dosage: 1 DF
     Dates: start: 201002

REACTIONS (3)
  - Haemorrhage [Recovering/Resolving]
  - Haematoma [Recovering/Resolving]
  - Drug administration error [Unknown]
